FAERS Safety Report 9232050 (Version 1)
Quarter: 2013Q2

REPORT INFORMATION
  Report Type: Report from Study
  Country: US (occurrence: US)
  Receive Date: 20130415
  Receipt Date: 20130415
  Transmission Date: 20140414
  Serious: Yes (Hospitalization, Other)
  Sender: FDA-Public Use
  Company Number: US-ABBOTT-13P-163-1073634-00

PATIENT
  Age: 68 Year
  Sex: Male
  Weight: 111.23 kg

DRUGS (5)
  1. HUMIRA [Suspect]
     Indication: PSORIASIS
     Dates: start: 200606
  2. PAROXETINE [Concomitant]
     Indication: DEPRESSION
  3. BENICAR [Concomitant]
     Indication: HYPERTENSION
  4. ALLOPURINOL [Concomitant]
     Indication: GOUT
  5. SIMVASTATIN [Concomitant]
     Indication: HYPERLIPIDAEMIA

REACTIONS (5)
  - Exostosis [Not Recovered/Not Resolved]
  - Cardiac arrest [Recovered/Resolved]
  - Fall [Recovered/Resolved]
  - Accident [Recovered/Resolved]
  - Heart rate irregular [Recovered/Resolved]
